FAERS Safety Report 4570326-X (Version None)
Quarter: 2005Q1

REPORT INFORMATION
  Report Type: 
  Country: None (occurrence: None)
  Receive Date: 20050204
  Receipt Date: 20040924
  Transmission Date: 20050727
  Serious: Yes (Hospitalization)
  Sender: FDA-Public Use
  Company Number: JP-ROCHE-381431

PATIENT
  Age: 73 Year
  Sex: Female
  Weight: 60 kg

DRUGS (5)
  1. CAPECITABINE [Suspect]
     Indication: BREAST CANCER
     Dosage: THREE WEEKS TREATMENT FOLLOWED BY ONE WEEK REST
     Route: 048
     Dates: start: 20030809, end: 20031124
  2. CAPECITABINE [Suspect]
     Dosage: THREE WEEKS TREATMENT FOLLOWED BY ONE WEEK REST
     Route: 048
     Dates: start: 20040109, end: 20040220
  3. MEVALOTIN [Concomitant]
     Indication: HYPERLIPIDAEMIA
     Dosage: EVERY DAY
     Route: 048
     Dates: start: 19800615
  4. MINIPRESS [Concomitant]
     Indication: HYPERTENSION
     Dosage: EVERY DAY
     Route: 048
     Dates: start: 19800615
  5. NORVASC [Concomitant]
     Indication: HYPERTENSION
     Dosage: EVERY DAY
     Route: 048

REACTIONS (4)
  - NAUSEA [None]
  - PLEURAL EFFUSION [None]
  - SUDDEN HEARING LOSS [None]
  - VOMITING [None]
